FAERS Safety Report 14861586 (Version 1)
Quarter: 2018Q2

REPORT INFORMATION
  Report Type: Spontaneous
  Country: US (occurrence: US)
  Receive Date: 20180508
  Receipt Date: 20180508
  Transmission Date: 20180711
  Serious: No
  Sender: FDA-Public Use
  Company Number: US-PERRIGO-18US002403

PATIENT
  Age: 61 Year
  Sex: Female
  Weight: 77.98 kg

DRUGS (5)
  1. PERMETHRIN. [Suspect]
     Active Substance: PERMETHRIN
     Dosage: 1 APPLICATION, QD
     Route: 061
     Dates: start: 20180226, end: 20180227
  2. LIPID MODIFYING AGENTS [Concomitant]
     Active Substance: UNSPECIFIED INGREDIENT
     Indication: BLOOD CHOLESTEROL INCREASED
     Dosage: UNK
     Route: 065
  3. PERMETHRIN. [Suspect]
     Active Substance: PERMETHRIN
     Indication: ACARODERMATITIS
     Dosage: UNK, QD
     Route: 061
     Dates: start: 20180220, end: 20180221
  4. THYROID PREPARATIONS [Concomitant]
     Active Substance: UNSPECIFIED INGREDIENT
     Indication: HYPOTHYROIDISM
     Dosage: UNK
     Route: 065
  5. ESOMEPRAZOLE [Concomitant]
     Active Substance: ESOMEPRAZOLE
     Indication: GASTROOESOPHAGEAL REFLUX DISEASE
     Dosage: UNK
     Route: 048
     Dates: start: 201802

REACTIONS (2)
  - Inappropriate schedule of drug administration [Recovered/Resolved]
  - Drug ineffective [Unknown]

NARRATIVE: CASE EVENT DATE: 20180220
